FAERS Safety Report 6822860-7 (Version None)
Quarter: 2010Q3

REPORT INFORMATION
  Report Type: 
  Country: None (occurrence: None)
  Receive Date: 20100702
  Receipt Date: 20100617
  Transmission Date: 20110219
  Serious: Yes (Life-Threatening, Hospitalization)
  Sender: FDA-Public Use
  Company Number: AMAG201000268

PATIENT
  Age: 96 Year
  Sex: Female

DRUGS (16)
  1. FERAHEME [Suspect]
     Indication: IRON DEFICIENCY ANAEMIA
     Dosage: 510 MG, SINGLE, INTRAVENOUS
     Route: 042
     Dates: start: 20100609, end: 20100609
  2. FERAHEME [Suspect]
     Indication: RENAL FAILURE CHRONIC
     Dosage: 510 MG, SINGLE, INTRAVENOUS
     Route: 042
     Dates: start: 20100609, end: 20100609
  3. FERAHEME [Suspect]
     Indication: IRON DEFICIENCY ANAEMIA
     Dosage: 510 MG, SINGLE, INTRAVENOUS
     Route: 042
     Dates: start: 20100616, end: 20100616
  4. FERAHEME [Suspect]
     Indication: RENAL FAILURE CHRONIC
     Dosage: 510 MG, SINGLE, INTRAVENOUS
     Route: 042
     Dates: start: 20100616, end: 20100616
  5. ARTIFICIAL TEARS (HYPROMELLOSE) [Concomitant]
  6. BUMEX [Concomitant]
  7. CLINDAMYCIN (CLINDAMYCIN PHOSPHATE) [Concomitant]
  8. FELODIPINE [Concomitant]
  9. FLUTICASONE (FLUTICASONE PROPIONATE) [Concomitant]
  10. IMDUR [Concomitant]
  11. LAC-HYDRIN (AMMONIUM LACTATE) [Concomitant]
  12. LEVOXYL [Concomitant]
  13. LISINOPRIL (LISINOPRIL DIHYDRATE) [Concomitant]
  14. METOPROLOL TARTRATE [Concomitant]
  15. NEXIUM [Concomitant]
  16. WARFARIN SODIUM [Concomitant]

REACTIONS (8)
  - BLOOD PRESSURE INCREASED [None]
  - CARDIAC ARREST [None]
  - EYE ROLLING [None]
  - HEART RATE INCREASED [None]
  - MUSCLE RIGIDITY [None]
  - RESPIRATORY ARREST [None]
  - RESPIRATORY RATE INCREASED [None]
  - URINARY TRACT INFECTION [None]
